FAERS Safety Report 16629565 (Version 4)
Quarter: 2019Q3

REPORT INFORMATION
  Report Type: Spontaneous
  Country: US (occurrence: US)
  Receive Date: 20190725
  Receipt Date: 20190913
  Transmission Date: 20191004
  Serious: Yes (Hospitalization, Other)
  Sender: FDA-Public Use
  Company Number: US-HORIZON-RAV-0229-2019

PATIENT
  Age: 34 Year
  Sex: Female

DRUGS (1)
  1. RAVICTI [Suspect]
     Active Substance: GLYCEROL PHENYLBUTYRATE
     Indication: UREA CYCLE DISORDER
     Dates: start: 2013

REACTIONS (7)
  - Ammonia increased [Recovered/Resolved]
  - Dental operation [Unknown]
  - Confusional state [Unknown]
  - Malaise [Unknown]
  - Therapy cessation [Unknown]
  - Somatic symptom disorder [Unknown]
  - Treatment noncompliance [Unknown]

NARRATIVE: CASE EVENT DATE: 20190711
